FAERS Safety Report 10158476 (Version 1)
Quarter: 2014Q2

REPORT INFORMATION
  Report Type: Spontaneous
  Country: US (occurrence: US)
  Receive Date: 20140507
  Receipt Date: 20140507
  Transmission Date: 20141212
  Serious: Yes (Other)
  Sender: FDA-Public Use
  Company Number: US-RB-066854-14

PATIENT
  Age: 0 Year
  Sex: Female

DRUGS (4)
  1. SUBUTEX [Suspect]
     Route: 064
     Dates: end: 20130604
  2. SUBUTEX [Suspect]
     Indication: DRUG DEPENDENCE
     Route: 063
     Dates: start: 201306
  3. NICOTINE [Concomitant]
     Dosage: 10 CIGARETTES DAILY
     Route: 064
     Dates: start: 201210, end: 20130604
  4. NICOTINE [Concomitant]
     Indication: PRODUCT USED FOR UNKNOWN INDICATION
     Dosage: 10 CIGARETTES DAILY
     Route: 063
     Dates: start: 201306

REACTIONS (4)
  - Foetal exposure during pregnancy [Recovered/Resolved]
  - Premature baby [Recovered/Resolved]
  - Jaundice neonatal [Recovered/Resolved]
  - Exposure during breast feeding [Recovered/Resolved]
